FAERS Safety Report 7457106-2 (Version None)
Quarter: 2011Q2

REPORT INFORMATION
  Report Type: 
  Country: None (occurrence: None)
  Receive Date: 20110504
  Receipt Date: 20110421
  Transmission Date: 20111010
  Serious: Yes (Hospitalization, Other)
  Sender: FDA-Public Use
  Company Number: US-ELI_LILLY_AND_COMPANY-US201102002861

PATIENT
  Sex: Female

DRUGS (15)
  1. FORTEO [Suspect]
     Dosage: 20 UG, DAILY (1/D)
  2. PREDNISOLONE [Concomitant]
     Dosage: 5 MG, UNK
  3. CALCIUM [Concomitant]
  4. TRAMADOL [Concomitant]
  5. PRILOSEC [Concomitant]
  6. AVELOX [Concomitant]
  7. SINGULAIR [Concomitant]
     Indication: DYSPNOEA
  8. METOPROLOL SUCCINATE [Concomitant]
  9. MUCINEX DM [Concomitant]
  10. ALBUTEROL [Concomitant]
  11. PROVENTIL                          /00139501/ [Concomitant]
  12. FORTEO [Suspect]
     Indication: OSTEOPOROSIS
     Dosage: 20 UG, DAILY (1/D)
     Dates: start: 20090801
  13. FORTEO [Suspect]
     Dosage: 20 UG, QD
  14. AMOXIKLAV [Concomitant]
  15. SPIRIVA [Concomitant]

REACTIONS (5)
  - RESPIRATORY DISORDER [None]
  - GASTRIC DISORDER [None]
  - CHRONIC OBSTRUCTIVE PULMONARY DISEASE [None]
  - DIARRHOEA [None]
  - VOMITING [None]
